FAERS Safety Report 20164263 (Version 1)
Quarter: 2021Q4

REPORT INFORMATION
  Report Type: Spontaneous
  Country: US (occurrence: US)
  Receive Date: 20211209
  Receipt Date: 20211209
  Transmission Date: 20220303
  Serious: Yes (Other)
  Sender: FDA-Public Use
  Company Number: US-SUN PHARMACEUTICAL INDUSTRIES LTD-2021R1-319888

PATIENT
  Age: 22 Year
  Sex: Female

DRUGS (2)
  1. ASPIRIN [Suspect]
     Active Substance: ASPIRIN
     Indication: Antiphospholipid syndrome
     Dosage: UNK
     Route: 065
  2. ENOXAPARIN SODIUM [Suspect]
     Active Substance: ENOXAPARIN SODIUM
     Indication: Antiphospholipid syndrome
     Dosage: UNK
     Route: 065

REACTIONS (6)
  - Exposure during pregnancy [Unknown]
  - Foetal growth restriction [Unknown]
  - Lupus nephritis [Unknown]
  - Premature delivery [Unknown]
  - Pre-eclampsia [Unknown]
  - Thrombocytopenia [Unknown]
